FAERS Safety Report 5276149-0 (Version None)
Quarter: 2007Q1

REPORT INFORMATION
  Report Type: 
  Country: None (occurrence: None)
  Receive Date: 20070326
  Receipt Date: 20070131
  Transmission Date: 20070707
  Serious: Yes (Hospitalization)
  Sender: FDA-Public Use
  Company Number: FR-JNJFOC-20060802882

PATIENT
  Sex: Female
  Weight: 50.6 kg

DRUGS (4)
  1. TMC114 [Suspect]
     Route: 048
  2. TMC114 [Suspect]
     Indication: HIV INFECTION
     Route: 048
  3. RITONIVIR [Suspect]
     Indication: HIV INFECTION
     Route: 048
  4. RIFABUTIN [Concomitant]
     Indication: HIV INFECTION
     Route: 048

REACTIONS (1)
  - RASH MACULO-PAPULAR [None]
